FAERS Safety Report 13854908 (Version 7)
Quarter: 2018Q3

REPORT INFORMATION
  Report Type: Spontaneous
  Country: CA (occurrence: CA)
  Receive Date: 20170810
  Receipt Date: 20180904
  Transmission Date: 20181010
  Serious: Yes (Other)
  Sender: FDA-Public Use
  Company Number: CA-CELLTRION INC.-2017CA006335

PATIENT

DRUGS (9)
  1. ERGOCALCIFEROL. [Concomitant]
     Active Substance: ERGOCALCIFEROL
     Dosage: UNK, DAILY
     Route: 048
  2. PREDNISONE. [Concomitant]
     Active Substance: PREDNISONE
     Dosage: 40 MG, DAILY
     Route: 065
     Dates: start: 201603
  3. ASACOL [Concomitant]
     Active Substance: MESALAMINE
     Dosage: 800 MG, DAILY
     Route: 065
     Dates: start: 201603
  4. INFLECTRA [Suspect]
     Active Substance: INFLIXIMAB-DYYB
     Indication: COLITIS ULCERATIVE
     Dosage: 600 MG,CYCLIC EVERY 0,2,6 THEN EVERY 4 WEEKS
     Route: 042
  5. IRON [Concomitant]
     Active Substance: IRON
     Indication: SUPPLEMENTATION THERAPY
     Dosage: UNK, MONTHLY
     Route: 042
  6. INFLECTRA [Suspect]
     Active Substance: INFLIXIMAB-DYYB
     Dosage: 1200 MG, EVERY 0,2,6 THEN EVERY 4 WEEKS
     Route: 042
     Dates: start: 20170516
  7. CITALOPRAM [Concomitant]
     Active Substance: CITALOPRAM HYDROBROMIDE
     Dosage: 20 MG, DAILY
     Route: 065
     Dates: start: 2016
  8. SYNTHROID [Concomitant]
     Active Substance: LEVOTHYROXINE SODIUM
     Dosage: 0.15 MG, DAILY
     Route: 065
     Dates: start: 2007
  9. INFLECTRA [Suspect]
     Active Substance: INFLIXIMAB-DYYB
     Dosage: 600 MG,CYCLIC EVERY 0,2,6 THEN EVERY 8 WEEKS
     Route: 042

REACTIONS (16)
  - Eye infection [Recovering/Resolving]
  - Product use issue [Unknown]
  - Drug prescribing error [Unknown]
  - Otorrhoea [Recovering/Resolving]
  - Rhinorrhoea [Recovering/Resolving]
  - Increased upper airway secretion [Recovering/Resolving]
  - Abdominal pain upper [Not Recovered/Not Resolved]
  - Lower respiratory tract infection [Recovering/Resolving]
  - Malaise [Unknown]
  - Poor venous access [Unknown]
  - Frequent bowel movements [Not Recovered/Not Resolved]
  - Odynophagia [Not Recovered/Not Resolved]
  - Vomiting [Unknown]
  - Nasopharyngitis [Recovering/Resolving]
  - Oropharyngeal pain [Unknown]
  - Nausea [Unknown]

NARRATIVE: CASE EVENT DATE: 20170707
